FAERS Safety Report 21497547 (Version 1)
Quarter: 2022Q4

REPORT INFORMATION
  Report Type: Spontaneous
  Country: US (occurrence: US)
  Receive Date: 20221024
  Receipt Date: 20221024
  Transmission Date: 20230113
  Serious: Yes (Hospitalization, Other)
  Sender: FDA-Public Use
  Company Number: US-ROCHE-2625326

PATIENT
  Age: 60 Year
  Sex: Female
  Weight: 109.87 kg

DRUGS (17)
  1. CLONAZEPAM [Suspect]
     Active Substance: CLONAZEPAM
     Indication: Muscle spasms
     Route: 048
  2. OCREVUS [Suspect]
     Active Substance: OCRELIZUMAB
     Indication: Multiple sclerosis
     Dosage: 11/DEC/2019, 29/MAY/2020 AND 17/MAY/2021, 300MG FOR FOLLOWED 2WEEKSBY SECOND 300MG, 600MG EVERY 6 MO
     Route: 042
     Dates: start: 20191127
  3. OCREVUS [Suspect]
     Active Substance: OCRELIZUMAB
     Indication: Multiple sclerosis
     Dosage: 11/DEC/2019, 29/MAY/2020 AND 17/MAY/2021, 300MG FOR FOLLOWED 2WEEKSBY SECOND 300MG, 600MG EVERY 6 MO
     Route: 042
     Dates: start: 20191211
  4. OCREVUS [Suspect]
     Active Substance: OCRELIZUMAB
     Indication: Multiple sclerosis
     Dosage: 11/DEC/2019, 29/MAY/2020 AND 17/MAY/2021, 300MG FOR FOLLOWED 2WEEKSBY SECOND 300MG, 600MG EVERY 6 MO
     Route: 042
     Dates: start: 20200529
  5. OCREVUS [Suspect]
     Active Substance: OCRELIZUMAB
     Indication: Multiple sclerosis
     Dosage: 11/DEC/2019, 29/MAY/2020 AND 17/MAY/2021, 300MG FOR FOLLOWED 2WEEKSBY SECOND 300MG, 600MG EVERY 6 MO
     Route: 042
     Dates: start: 20210517
  6. MECLIZINE [Concomitant]
     Active Substance: MECLIZINE HYDROCHLORIDE
     Indication: Dizziness
     Dosage: AS NEEDED
  7. METFORMIN [Concomitant]
     Active Substance: METFORMIN HYDROCHLORIDE
  8. ATORVASTATIN [Concomitant]
     Active Substance: ATORVASTATIN
  9. AMLODIPINE [Concomitant]
     Active Substance: AMLODIPINE BESYLATE
  10. TRAZODONE [Concomitant]
     Active Substance: TRAZODONE HYDROCHLORIDE
     Indication: Anxiety
     Route: 048
  11. TRAZODONE [Concomitant]
     Active Substance: TRAZODONE HYDROCHLORIDE
     Indication: Depression
     Route: 048
  12. VENLAFAXINE [Concomitant]
     Active Substance: VENLAFAXINE HYDROCHLORIDE
     Indication: Anxiety
     Route: 048
  13. VENLAFAXINE [Concomitant]
     Active Substance: VENLAFAXINE HYDROCHLORIDE
     Indication: Depression
     Route: 048
  14. GABAPENTIN [Concomitant]
     Active Substance: GABAPENTIN
     Indication: Pain management
     Route: 048
  15. TIZANIDINE [Concomitant]
     Active Substance: TIZANIDINE
     Indication: Pain management
     Route: 048
  16. DICLOFENAC [Concomitant]
     Active Substance: DICLOFENAC
  17. MELOXICAM [Concomitant]
     Active Substance: MELOXICAM

REACTIONS (26)
  - Blood glucose increased [Not Recovered/Not Resolved]
  - Fall [Unknown]
  - Hemiplegia [Unknown]
  - Blood cholesterol increased [Not Recovered/Not Resolved]
  - Hypertension [Not Recovered/Not Resolved]
  - Tremor [Recovered/Resolved]
  - Erythema [Recovered/Resolved]
  - Mass [Recovered/Resolved]
  - Pruritus [Recovered/Resolved]
  - Magnetic resonance imaging abnormal [Unknown]
  - Paraesthesia [Unknown]
  - Hypoaesthesia [Not Recovered/Not Resolved]
  - Cerebrovascular accident [Unknown]
  - Fibromyalgia [Unknown]
  - Product use in unapproved indication [Unknown]
  - Fatigue [Unknown]
  - Urticaria [Unknown]
  - Somnolence [Unknown]
  - Anxiety [Unknown]
  - Multiple sclerosis [Recovered/Resolved]
  - Dizziness [Recovered/Resolved]
  - Somnolence [Recovered/Resolved]
  - Intervertebral disc protrusion [Not Recovered/Not Resolved]
  - Diverticulitis [Not Recovered/Not Resolved]
  - Asthenia [Recovered/Resolved]
  - Dyskinesia [Recovered/Resolved]

NARRATIVE: CASE EVENT DATE: 20210517
